FAERS Safety Report 16349945 (Version 2)
Quarter: 2019Q2

REPORT INFORMATION
  Report Type: Report from Study
  Country: TW (occurrence: TW)
  Receive Date: 20190523
  Receipt Date: 20190529
  Transmission Date: 20190711
  Serious: Yes (Hospitalization)
  Sender: FDA-Public Use
  Company Number: TW-ELI_LILLY_AND_COMPANY-TW201905010128

PATIENT
  Age: 43 Year
  Sex: Male
  Weight: 73 kg

DRUGS (4)
  1. CETUXIMAB. [Suspect]
     Active Substance: CETUXIMAB
     Indication: NASOPHARYNGEAL CANCER RECURRENT
     Dosage: 250 MG/M2, WEEKLY (1/W)
     Route: 041
     Dates: start: 20190501
  2. MITOMYCIN C [Suspect]
     Active Substance: MITOMYCIN
     Indication: NASOPHARYNGEAL CANCER RECURRENT
     Dosage: 13.9 MG, EVERY 3 WEEKS
     Route: 041
     Dates: start: 20190501
  3. EPIRUBICIN [Suspect]
     Active Substance: EPIRUBICIN
     Indication: NASOPHARYNGEAL CANCER RECURRENT
     Dosage: 104 MG, EVERY 3 WEEKS
     Route: 041
     Dates: start: 20190501
  4. CISPLATIN. [Suspect]
     Active Substance: CISPLATIN
     Indication: NASOPHARYNGEAL CANCER RECURRENT
     Dosage: 104 MG, EVERY 3 WEEKS
     Route: 041
     Dates: start: 20190501

REACTIONS (3)
  - Neutropenia [Recovering/Resolving]
  - Mucosal inflammation [Recovering/Resolving]
  - Off label use [Unknown]

NARRATIVE: CASE EVENT DATE: 20190515
